FAERS Safety Report 25672035 (Version 4)
Quarter: 2025Q3

REPORT INFORMATION
  Report Type: Report from Study
  Country: US (occurrence: US)
  Receive Date: 20250812
  Receipt Date: 20250915
  Transmission Date: 20251021
  Serious: Yes (Other)
  Sender: MALLINCKRODT
  Company Number: US-MALLINCKRODT-MNK202504772

PATIENT
  Age: 81 Year
  Sex: Female

DRUGS (2)
  1. CORTICOTROPIN [Suspect]
     Active Substance: CORTICOTROPIN
     Indication: Punctate keratitis
     Dates: start: 202404
  2. CORTICOTROPIN [Suspect]
     Active Substance: CORTICOTROPIN
     Route: 058
     Dates: start: 20250726, end: 20250902

REACTIONS (5)
  - Punctate keratitis [Not Recovered/Not Resolved]
  - Condition aggravated [Not Recovered/Not Resolved]
  - Vision blurred [Not Recovered/Not Resolved]
  - Disorientation [Unknown]
  - Therapy non-responder [Unknown]
